FAERS Safety Report 5151743-6 (Version None)
Quarter: 2006Q4

REPORT INFORMATION
  Report Type: 
  Country: None (occurrence: None)
  Receive Date: 20061107
  Receipt Date: 20061019
  Transmission Date: 20070319
  Serious: Yes (Death, Other)
  Sender: FDA-Public Use
  Company Number: AU200610003175

PATIENT
  Age: 61 Year
  Sex: Female

DRUGS (1)
  1. XIGRIS [Suspect]
     Indication: SEPSIS
     Dosage: 24 MG/KG
     Dates: start: 20061001, end: 20061001

REACTIONS (2)
  - GASTROINTESTINAL HAEMORRHAGE [None]
  - INTRA-ABDOMINAL HAEMORRHAGE [None]
